FAERS Safety Report 10065307 (Version 1)
Quarter: 2014Q1

REPORT INFORMATION
  Report Type: Spontaneous
  Country: US (occurrence: None)
  Receive Date: 20140328
  Receipt Date: 20140328
  Transmission Date: 20141002
  Serious: No
  Sender: FDA-Public Use
  Company Number: 1000051897

PATIENT
  Age: 26 Year
  Sex: Female

DRUGS (4)
  1. LINZESS (LINACLOTIDE) (290 MICROGRAM, CAPSULES) [Suspect]
     Indication: IRRITABLE BOWEL SYNDROME
     Route: 048
     Dates: start: 20131121
  2. DEXILANT (DEXLANSOPRAZOLE) [Suspect]
     Indication: GASTROOESOPHAGEAL REFLUX DISEASE
     Dates: start: 20131121
  3. BACLOFEN (BACLOFEN) (BACLOFEN) [Concomitant]
  4. DIFLUCAN (FLUCONAZOLE) (FLUCONAZOLE) [Concomitant]

REACTIONS (1)
  - Migraine [None]
